FAERS Safety Report 6902352-7 (Version None)
Quarter: 2010Q3

REPORT INFORMATION
  Report Type: 
  Country: None (occurrence: None)
  Receive Date: 20100803
  Receipt Date: 20080516
  Transmission Date: 20110219
  Serious: No
  Sender: FDA-Public Use
  Company Number: US-PFIZER INC-2008041243

PATIENT
  Sex: Female
  Weight: 59.1 kg

DRUGS (12)
  1. LYRICA [Suspect]
     Indication: NEUROPATHY PERIPHERAL
     Dates: start: 20080101
  2. NAPROXEN [Concomitant]
  3. ACETYLSALICYLIC ACID SRT [Concomitant]
  4. BACTRIM [Concomitant]
  5. ALL OTHER THERAPEUTIC PRODUCTS [Concomitant]
  6. EPZICOM [Concomitant]
  7. REYATAZ [Concomitant]
  8. HYDROCORTISONE [Concomitant]
  9. CALCIUM CARBONATE [Concomitant]
  10. ALPRAZOLAM [Concomitant]
  11. DOCUSATE [Concomitant]
  12. VITAMIN TAB [Concomitant]

REACTIONS (4)
  - DRUG INEFFECTIVE [None]
  - NERVOUSNESS [None]
  - OEDEMA [None]
  - WEIGHT INCREASED [None]
